FAERS Safety Report 7042731-3 (Version None)
Quarter: 2010Q4

REPORT INFORMATION
  Report Type: 
  Country: None (occurrence: None)
  Receive Date: 20101013
  Receipt Date: 20100609
  Transmission Date: 20110411
  Serious: No
  Sender: FDA-Public Use
  Company Number: US-ASTRAZENECA-2010SE27079

PATIENT
  Age: 60 Year
  Sex: Female
  Weight: 54.4 kg

DRUGS (1)
  1. SYMBICORT [Suspect]
     Indication: CHRONIC OBSTRUCTIVE PULMONARY DISEASE
     Dosage: UNKNOWN DOSE 1 PUFF TWO TIMES A A DAY
     Route: 055
     Dates: start: 20080614

REACTIONS (3)
  - FATIGUE [None]
  - MALAISE [None]
  - STRESS [None]
